FAERS Safety Report 7590400-3 (Version None)
Quarter: 2011Q3

REPORT INFORMATION
  Report Type: 
  Country: None (occurrence: None)
  Receive Date: 20110705
  Receipt Date: 20110621
  Transmission Date: 20111222
  Serious: Yes (Death, Hospitalization, Other)
  Sender: FDA-Public Use
  Company Number: US-BRISTOL-MYERS SQUIBB COMPANY-15846363

PATIENT
  Age: 65 Year
  Sex: Female
  Weight: 58 kg

DRUGS (5)
  1. CISPLATIN [Suspect]
     Indication: ANAL CANCER
     Dosage: START DATE OF RECENT COURSE:13JUN2011;END DATE:13JUN2011
     Dates: start: 20110509, end: 20110613
  2. ERBITUX [Suspect]
     Indication: ANAL CANCER
     Dosage: START DATE OF RECENT COURSE:13JUN2011 LAST DOSE ON 20JUN2011
     Dates: start: 20110509
  3. FUROSEMIDE [Suspect]
  4. HYDROMORPHONE HCL [Concomitant]
  5. FLUOROURACIL [Suspect]
     Indication: ANAL CANCER
     Dosage: START DATE OF RECENT COURSE:13JUN2011;END DATE:17JUN2011
     Dates: start: 20110509, end: 20110617

REACTIONS (8)
  - ASPIRATION [None]
  - NAUSEA [None]
  - HYPONATRAEMIA [None]
  - DEHYDRATION [None]
  - HYPOKALAEMIA [None]
  - PROCTALGIA [None]
  - DIARRHOEA [None]
  - VOMITING [None]
